FAERS Safety Report 23528416 (Version 1)
Quarter: 2024Q1

REPORT INFORMATION
  Report Type: Spontaneous
  Country: US (occurrence: US)
  Receive Date: 20240215
  Receipt Date: 20240215
  Transmission Date: 20240410
  Serious: No
  Sender: FDA-Public Use
  Company Number: US-Covis Pharma GmbH-2024COV00165

PATIENT
  Age: 71 Year
  Sex: Female

DRUGS (2)
  1. RILUZOLE [Suspect]
     Active Substance: RILUZOLE
     Route: 048
  2. RADICAVA [Suspect]
     Active Substance: EDARAVONE
     Indication: Amyotrophic lateral sclerosis
     Route: 048

REACTIONS (6)
  - Vulvovaginal pruritus [Unknown]
  - Vaginal disorder [Unknown]
  - Psoriasis [Unknown]
  - Eructation [Unknown]
  - Diarrhoea [Unknown]
  - Rhinorrhoea [Unknown]
